FAERS Safety Report 9613401 (Version 3)
Quarter: 2014Q1

REPORT INFORMATION
  Report Type: Spontaneous
  Country: US (occurrence: US)
  Receive Date: 20131010
  Receipt Date: 20140227
  Transmission Date: 20141002
  Serious: Yes (Hospitalization)
  Sender: FDA-Public Use
  Company Number: US-B.I. PHARMACEUTICALS,INC./RIDGEFIELD-2013-BI-31609BP

PATIENT
  Age: 82 Year
  Sex: Male
  Weight: 92.99 kg

DRUGS (14)
  1. PRADAXA [Suspect]
     Indication: ATRIAL FIBRILLATION
     Dosage: 300 MG
     Route: 048
     Dates: start: 20110309, end: 20111006
  2. ASPIRIN [Concomitant]
     Dosage: 81 MG
     Route: 065
  3. MELOXICAM [Concomitant]
     Route: 048
  4. AMLODIPINE [Concomitant]
     Dosage: 10 MG
     Route: 048
  5. FEXOFENADINE [Concomitant]
     Route: 048
  6. FUROSEMIDE [Concomitant]
     Route: 048
     Dates: start: 1998
  7. ZOLPIDEM [Concomitant]
     Route: 048
  8. AMIODARONE [Concomitant]
     Dosage: 200 MG
     Route: 048
     Dates: start: 2011
  9. CRESTOR [Concomitant]
     Dosage: 10 MG
     Route: 048
     Dates: start: 2007
  10. POTASSIUM CHLORIDE [Concomitant]
     Dosage: 10 MEQ
     Route: 048
  11. LOSARTAN [Concomitant]
     Dosage: 50 MG
     Route: 048
     Dates: start: 2011
  12. COREG [Concomitant]
     Dosage: 12.5 MG
     Route: 048
     Dates: start: 1998
  13. TRILIPIX [Concomitant]
     Dosage: 135 MG
     Route: 048
  14. FLOMAX [Concomitant]
     Dosage: 0.4 MG
     Route: 048
     Dates: start: 1998

REACTIONS (2)
  - Gastrointestinal haemorrhage [Unknown]
  - Haemorrhagic anaemia [Unknown]
